FAERS Safety Report 8790500 (Version 1)
Quarter: 2012Q4

REPORT INFORMATION
  Report Type: Spontaneous
  Country: None (occurrence: None)
  Receive Date: 20120912
  Receipt Date: 20120912
  Transmission Date: 20130627
  Serious: Yes (Other)
  Sender: FDA-Public Use
  Company Number: None

PATIENT
  Age: 33 Year
  Sex: Male
  Weight: 66 kg

DRUGS (1)
  1. UNSPECIFIED INGREDIENT [Suspect]
     Indication: HIGH CHOLESTEROL
     Dates: start: 20120806, end: 20120811

REACTIONS (2)
  - Pollakiuria [None]
  - Dysuria [None]
